FAERS Safety Report 15617434 (Version 1)
Quarter: 2018Q4

REPORT INFORMATION
  Report Type: Spontaneous
  Country: BR (occurrence: BR)
  Receive Date: 20181114
  Receipt Date: 20181114
  Transmission Date: 20190205
  Serious: Yes (Other)
  Sender: FDA-Public Use
  Company Number: PHHY2018BR149771

PATIENT
  Age: 23 Year
  Sex: Male

DRUGS (4)
  1. THALIDOMIDE [Suspect]
     Active Substance: THALIDOMIDE
     Indication: TYPE 2 LEPRA REACTION
  2. PREDNISONE. [Suspect]
     Active Substance: PREDNISONE
     Indication: TYPE 2 LEPRA REACTION
  3. THALIDOMIDE [Suspect]
     Active Substance: THALIDOMIDE
     Indication: LEPROSY
     Dosage: 200 MG, QD
     Route: 065
  4. PREDNISONE. [Suspect]
     Active Substance: PREDNISONE
     Indication: LEPROSY
     Dosage: 40 MG, QD
     Route: 065

REACTIONS (4)
  - Type 2 lepra reaction [Unknown]
  - Skin lesion [Unknown]
  - Product use in unapproved indication [Unknown]
  - Dermatophytosis [Unknown]
